FAERS Safety Report 9500120 (Version 1)
Quarter: 2013Q3

REPORT INFORMATION
  Report Type: Spontaneous
  Country: US (occurrence: None)
  Receive Date: 20130903
  Receipt Date: 20130903
  Transmission Date: 20140515
  Serious: Yes (Hospitalization)
  Sender: FDA-Public Use
  Company Number: SYM-2013-06411

PATIENT
  Age: 7 Year
  Sex: Female

DRUGS (1)
  1. XENAZINE (TETRABENAZINE) (12.5 MILLIGRAM, TABLET) (TETRABENAZINE) [Suspect]
     Indication: TREMOR
     Dosage: 12.5 MG, 2 IN 1 D, ORAL
     Route: 048

REACTIONS (2)
  - Convulsion [None]
  - Drug dose omission [None]
